FAERS Safety Report 11669629 (Version 4)
Quarter: 2016Q1

REPORT INFORMATION
  Report Type: Report from Study
  Country: BR (occurrence: BR)
  Receive Date: 20151027
  Receipt Date: 20160301
  Transmission Date: 20160525
  Serious: Yes (Life-Threatening, Other)
  Sender: FDA-Public Use
  Company Number: PHHY2015BR138815

PATIENT
  Sex: Female
  Weight: 59 kg

DRUGS (8)
  1. PREDNISONE. [Concomitant]
     Active Substance: PREDNISONE
     Indication: RHEUMATOID ARTHRITIS
     Dosage: 5 MG, QD
     Route: 065
  2. VITERGAN MASTER [Concomitant]
     Indication: PRODUCT USED FOR UNKNOWN INDICATION
     Dosage: QD
     Route: 065
  3. EXJADE [Suspect]
     Active Substance: DEFERASIROX
     Dosage: 20 MG/KG, QD (1000 MG ONCE DAILY)
     Route: 048
     Dates: start: 20151021
  4. REUQUINOL [Concomitant]
     Active Substance: HYDROXYCHLOROQUINE SULFATE
     Indication: RHEUMATOID ARTHRITIS
     Dosage: 1 DF, QD
     Route: 065
  5. FRONTAL [Concomitant]
     Active Substance: ALPRAZOLAM
     Indication: SLEEP DISORDER
     Dosage: 0.5 MG, QD
     Route: 065
  6. EXJADE [Suspect]
     Active Substance: DEFERASIROX
     Indication: MYELODYSPLASTIC SYNDROME
     Dosage: 15 MG/KG, QD (2 TABLETS OF 500 MG)
     Route: 048
     Dates: start: 2012, end: 2012
  7. PREDNISONE. [Concomitant]
     Active Substance: PREDNISONE
     Dosage: 20 MG, QD
     Route: 048
  8. PANTOPRAZOLE [Concomitant]
     Active Substance: PANTOPRAZOLE SODIUM
     Indication: ABDOMINAL DISCOMFORT
     Dosage: 40 MG, QD
     Route: 065

REACTIONS (26)
  - Vomiting [Recovered/Resolved]
  - Diarrhoea [Recovered/Resolved]
  - Aortic stenosis [Unknown]
  - Terminal state [Unknown]
  - Dry eye [Unknown]
  - Cardiac disorder [Not Recovered/Not Resolved]
  - Fall [Unknown]
  - Flavivirus infection [Recovered/Resolved]
  - Crying [Unknown]
  - Aptyalism [Unknown]
  - Dengue fever [Recovered/Resolved]
  - Arterial occlusive disease [Unknown]
  - Heart valve stenosis [Unknown]
  - Sjogren^s syndrome [Unknown]
  - Body height decreased [Not Recovered/Not Resolved]
  - Thoracic vertebral fracture [Unknown]
  - Pemphigus [Recovered/Resolved]
  - Diverticulum [Unknown]
  - Lip dry [Unknown]
  - Therapeutic response decreased [Unknown]
  - Coronary artery occlusion [Unknown]
  - Mitral valve calcification [Not Recovered/Not Resolved]
  - Dry mouth [Unknown]
  - Spinal pain [Unknown]
  - Concomitant disease aggravated [Unknown]
  - Serum ferritin increased [Recovering/Resolving]

NARRATIVE: CASE EVENT DATE: 2015
